FAERS Safety Report 13135680 (Version 1)
Quarter: 2017Q1

REPORT INFORMATION
  Report Type: Spontaneous
  Country: US (occurrence: US)
  Receive Date: 20170120
  Receipt Date: 20170120
  Transmission Date: 20170428
  Serious: Yes (Other)
  Sender: FDA-Public Use
  Company Number: US-ABBVIE-17P-163-1847890-00

PATIENT
  Age: 36 Year
  Sex: Female

DRUGS (1)
  1. SYNTHROID [Suspect]
     Active Substance: LEVOTHYROXINE SODIUM
     Indication: HYPOTHYROIDISM
     Route: 048
     Dates: start: 201609

REACTIONS (4)
  - Abortion spontaneous [Unknown]
  - Foetal death [Unknown]
  - Exposure during pregnancy [Unknown]
  - Alopecia [Not Recovered/Not Resolved]
